FAERS Safety Report 7429887-5 (Version None)
Quarter: 2011Q2

REPORT INFORMATION
  Report Type: 
  Country: None (occurrence: None)
  Receive Date: 20110421
  Receipt Date: 20110418
  Transmission Date: 20111010
  Serious: Yes (Other)
  Sender: FDA-Public Use
  Company Number: FR-ABBOTT-11P-056-0720026-00

PATIENT
  Age: 36 Year
  Sex: Female

DRUGS (5)
  1. VALPROIC ACID [Interacting]
     Indication: PROPHYLAXIS
     Dosage: 1500 MG DAILY
  2. DIAZEPAM [Interacting]
     Indication: AGITATION
     Dosage: 30 MG DAILY
  3. OLANZAPINE [Interacting]
     Indication: PRODUCT USED FOR UNKNOWN INDICATION
     Dosage: 10 MG DAILY
  4. OLANZAPINE [Interacting]
     Dosage: 20 MG DAILY
  5. VALPROIC ACID [Suspect]
     Indication: MANIA
     Dosage: 1000 MG DAILY

REACTIONS (2)
  - ENCEPHALOPATHY [None]
  - DRUG INTERACTION [None]
